FAERS Safety Report 8426309-2 (Version None)
Quarter: 2012Q2

REPORT INFORMATION
  Report Type: 
  Country: None (occurrence: None)
  Receive Date: 20120611
  Receipt Date: 20120608
  Transmission Date: 20120825
  Serious: Yes (Life-Threatening)
  Sender: FDA-Public Use
  Company Number: IT-ABBOTT-12P-083-0943732-00

PATIENT
  Sex: Male

DRUGS (5)
  1. ENALAPRIL MALEATE [Concomitant]
     Indication: HYPERTENSION
     Route: 048
     Dates: start: 20100927, end: 20120604
  2. ZIAGEN [Suspect]
     Indication: ACUTE HIV INFECTION
     Route: 048
     Dates: start: 20061030, end: 20111223
  3. NORVIR [Suspect]
     Indication: ACUTE HIV INFECTION
     Dates: start: 20061030, end: 20111223
  4. PREZISTA [Suspect]
     Indication: ACUTE HIV INFECTION
     Route: 048
     Dates: start: 20061030, end: 20111223
  5. VIREAD [Concomitant]
     Indication: ACUTE HIV INFECTION
     Route: 048
     Dates: start: 20061030, end: 20120604

REACTIONS (2)
  - CORONARY ARTERY OCCLUSION [None]
  - ARTERIOSCLEROSIS CORONARY ARTERY [None]
